FAERS Safety Report 10630625 (Version 1)
Quarter: 2014Q4

REPORT INFORMATION
  Report Type: Spontaneous
  Country: DE (occurrence: None)
  Receive Date: 20141203
  Receipt Date: 20141203
  Transmission Date: 20150529
  Serious: Yes (Death)
  Sender: FDA-Public Use
  Company Number: DE-H14001-14-01705

PATIENT
  Age: 56 Year
  Sex: Male

DRUGS (6)
  1. CISPLATIN (CISPLATIN) [Suspect]
     Active Substance: CISPLATIN
     Indication: SEMINOMA
  2. ETOPOSIDE (ETOPOSIDE) (ETOPOSIDE) [Suspect]
     Active Substance: ETOPOSIDE
     Indication: SEMINOMA
  3. BLEOMYCIN (BLEOMYCIN) (BLEOMYCIN) [Suspect]
     Active Substance: BLEOMYCIN SULFATE
     Indication: TESTICULAR GERM CELL CANCER METASTATIC
  4. BLEOMYCIN (BLEOMYCIN) (BLEOMYCIN) [Suspect]
     Active Substance: BLEOMYCIN SULFATE
     Indication: SEMINOMA
  5. CISPLATIN (CISPLATIN) [Suspect]
     Active Substance: CISPLATIN
     Indication: TESTICULAR GERM CELL CANCER METASTATIC
  6. ETOPOSIDE (ETOPOSIDE) (ETOPOSIDE) [Suspect]
     Active Substance: ETOPOSIDE
     Indication: TESTICULAR GERM CELL CANCER METASTATIC

REACTIONS (4)
  - Cerebral infarction [None]
  - Cerebral artery stenosis [None]
  - Subdural haematoma [None]
  - Arterial occlusive disease [None]
